FAERS Safety Report 24290442 (Version 2)
Quarter: 2024Q3

REPORT INFORMATION
  Report Type: Spontaneous
  Country: BE (occurrence: BE)
  Receive Date: 20240906
  Receipt Date: 20240919
  Transmission Date: 20241016
  Serious: No
  Sender: EXELIXIS
  Company Number: BE-IPSEN Group, Research and Development-2024-17179

PATIENT

DRUGS (1)
  1. CABOMETYX [Suspect]
     Active Substance: CABOZANTINIB S-MALATE
     Indication: Product used for unknown indication
     Dosage: UNK
     Route: 065

REACTIONS (1)
  - Palmar-plantar erythrodysaesthesia syndrome [Unknown]
